FAERS Safety Report 11345157 (Version 1)
Quarter: 2015Q3

REPORT INFORMATION
  Report Type: Spontaneous
  Country: US (occurrence: None)
  Receive Date: 20150805
  Receipt Date: 20150805
  Transmission Date: 20151125
  Serious: Yes (Hospitalization)
  Sender: FDA-Public Use
  Company Number: None

PATIENT
  Age: 59 Year
  Sex: Male

DRUGS (1)
  1. OXCARBAZINE [Suspect]
     Active Substance: OXCARBAZEPINE
     Indication: CONVULSION PROPHYLAXIS
     Route: 048
     Dates: end: 20141030

REACTIONS (5)
  - Swollen tongue [None]
  - Dyspnoea [None]
  - Drooling [None]
  - Dysphagia [None]
  - Wheezing [None]

NARRATIVE: CASE EVENT DATE: 20141030
